FAERS Safety Report 7828612 (Version 4)
Quarter: 2013Q1

REPORT INFORMATION
  Report Type: Spontaneous
  Country: JP (occurrence: JP)
  Receive Date: 20110225
  Receipt Date: 20130311
  Transmission Date: 20140127
  Serious: Yes (Other)
  Sender: FDA-Public Use
  Company Number: JP-ELI_LILLY_AND_COMPANY-JP201102004819

PATIENT
  Age: 81 Year
  Sex: Female

DRUGS (1)
  1. FORTEO [Suspect]
     Dosage: UNK
     Route: 058
     Dates: start: 2010, end: 201212

REACTIONS (10)
  - Lymphoma [Unknown]
  - Pain in extremity [Unknown]
  - Hypoaesthesia [Unknown]
  - Back pain [Unknown]
  - Arthralgia [Unknown]
  - Abdominal pain [Unknown]
  - Arthralgia [Unknown]
  - Bone density decreased [Unknown]
  - Pain in extremity [Unknown]
  - Neck pain [Unknown]
